FAERS Safety Report 4324594-X (Version None)
Quarter: 2004Q1

REPORT INFORMATION
  Report Type: 
  Country: None (occurrence: None)
  Receive Date: 20040322
  Receipt Date: 20040310
  Transmission Date: 20041129
  Serious: Yes (Hospitalization)
  Sender: FDA-Public Use
  Company Number: OMPQ-NO-0403L-0196

PATIENT
  Age: 73 Year
  Sex: Male

DRUGS (3)
  1. OMNIPAQUE 70 [Suspect]
     Indication: CHEST PAIN
     Dosage: 95 ML, SINGLE DOSE, I.A.
     Route: 014
     Dates: start: 20030207, end: 20030207
  2. HEPARIN [Concomitant]
  3. NITROGLYCERIN (MILLISROL) [Concomitant]

REACTIONS (5)
  - BLOOD PRESSURE INCREASED [None]
  - CEREBRAL ATHEROSCLEROSIS [None]
  - CEREBROVASCULAR STENOSIS [None]
  - GLOBAL AMNESIA [None]
  - NUCLEAR MAGNETIC RESONANCE IMAGING BRAIN ABNORMAL [None]
